FAERS Safety Report 4991526-0 (Version None)
Quarter: 2006Q2

REPORT INFORMATION
  Report Type: 
  Country: None (occurrence: None)
  Receive Date: 20060502
  Receipt Date: 20060425
  Transmission Date: 20061013
  Serious: Yes (Hospitalization)
  Sender: FDA-Public Use
  Company Number: 2006-04-1905

PATIENT
  Age: 7 Year
  Sex: Male

DRUGS (2)
  1. NASONEX [Suspect]
     Indication: HYPERSENSITIVITY
     Dosage: NASAL SPRAY
     Route: 045
     Dates: start: 20050801
  2. NASONEX [Suspect]
     Indication: HYPERSENSITIVITY
     Dosage: NASAL SPRAY
     Route: 045
     Dates: start: 20060401

REACTIONS (3)
  - ABNORMAL BEHAVIOUR [None]
  - DYSPHAGIA [None]
  - IMPULSIVE BEHAVIOUR [None]
